FAERS Safety Report 6239040-9 (Version None)
Quarter: 2009Q2

REPORT INFORMATION
  Report Type: 
  Country: None (occurrence: None)
  Receive Date: 20090622
  Receipt Date: 20090615
  Transmission Date: 20091009
  Serious: Yes (Death)
  Sender: FDA-Public Use
  Company Number: PHEH2009US05890

PATIENT

DRUGS (4)
  1. EXJADE [Suspect]
     Indication: MYELODYSPLASTIC SYNDROME
     Dosage: 1500 MG, QD
     Route: 048
     Dates: start: 20060515, end: 20080630
  2. VANCOMYCIN [Concomitant]
     Dosage: 2 G, QD
     Route: 042
  3. MS CONTIN [Concomitant]
     Dosage: 120 MG, BID
     Route: 048
  4. MORPHINE [Concomitant]
     Dosage: 60 MG, Q4H PRN

REACTIONS (5)
  - BONE MARROW FAILURE [None]
  - BRONCHOPULMONARY ASPERGILLOSIS [None]
  - DISEASE PROGRESSION [None]
  - INFECTION [None]
  - STAPHYLOCOCCAL SEPSIS [None]
